FAERS Safety Report 16977991 (Version 2)
Quarter: 2020Q1

REPORT INFORMATION
  Report Type: Spontaneous
  Country: BE (occurrence: BE)
  Receive Date: 20191031
  Receipt Date: 20200110
  Transmission Date: 20200409
  Serious: Yes (Other)
  Sender: FDA-Public Use
  Company Number: BE-TEVA-2019-BE-1129978

PATIENT
  Age: 66 Year
  Sex: Male

DRUGS (3)
  1. KEPPRA [Concomitant]
     Active Substance: LEVETIRACETAM
     Indication: EPILEPSY
     Dosage: 1 AT 8AM IN THE MORNING AND ?1 TO 17.20 U. (WITH OR WITH FOOD),  1000 MG PER DAY
     Dates: start: 20110709
  2. LEVOFLOXACINE 500 MG [Suspect]
     Active Substance: LEVOFLOXACIN
     Indication: PROSTATITIS
     Dosage: 500 MG PER DAY
     Dates: end: 20191007
  3. BISOPROLOL TEVA 5 MG [Concomitant]
     Active Substance: BISOPROLOL
     Indication: HYPERTENSION
     Dosage: 5 MG PER DAY
     Dates: start: 20150617

REACTIONS (2)
  - Loss of consciousness [Recovered/Resolved]
  - Epilepsy [Recovered/Resolved]

NARRATIVE: CASE EVENT DATE: 20191005
